FAERS Safety Report 14508966 (Version 5)
Quarter: 2018Q2

REPORT INFORMATION
  Report Type: Other
  Country: IT (occurrence: IT)
  Receive Date: 20180209
  Receipt Date: 20180612
  Transmission Date: 20180711
  Serious: Yes (Life-Threatening, Other)
  Sender: FDA-Public Use
  Company Number: IT-APOTEX-2018AP006305

PATIENT
  Age: 38 Year
  Sex: Male

DRUGS (2)
  1. QUETIAPINE. [Suspect]
     Active Substance: QUETIAPINE
     Indication: SUICIDE ATTEMPT
     Dosage: 19 G,IN TOTAL
     Route: 048
     Dates: start: 20171204, end: 20171204
  2. QUETIAPINE. [Suspect]
     Active Substance: QUETIAPINE
     Indication: SCHIZOPHRENIA

REACTIONS (2)
  - Sinus tachycardia [Recovering/Resolving]
  - Drug abuse [Recovered/Resolved]

NARRATIVE: CASE EVENT DATE: 20171204
